FAERS Safety Report 23662849 (Version 1)
Quarter: 2024Q1

REPORT INFORMATION
  Report Type: Spontaneous
  Country: US (occurrence: US)
  Receive Date: 20240322
  Receipt Date: 20240322
  Transmission Date: 20240410
  Serious: Yes (Life-Threatening, Hospitalization, Other)
  Sender: FDA-Public Use
  Company Number: US-SUN PHARMACEUTICAL INDUSTRIES LTD-2024R1-437559

PATIENT
  Age: 47 Year
  Sex: Female

DRUGS (4)
  1. METHYLPREDNISOLONE [Interacting]
     Active Substance: METHYLPREDNISOLONE
     Indication: Myopathy
     Route: 065
  2. HYDROXYCHLOROQUINE [Interacting]
     Active Substance: HYDROXYCHLOROQUINE
     Indication: Myopathy
     Route: 065
  3. AZATHIOPRINE [Interacting]
     Active Substance: AZATHIOPRINE
     Indication: Myopathy
     Route: 065
  4. COLCHICINE [Interacting]
     Active Substance: COLCHICINE
     Indication: Myopathy
     Route: 065

REACTIONS (4)
  - Drug interaction [Unknown]
  - Respiratory failure [Unknown]
  - Toxicity to various agents [Unknown]
  - Myopathy [Unknown]
